FAERS Safety Report 6510565-1 (Version None)
Quarter: 2009Q4

REPORT INFORMATION
  Report Type: 
  Country: None (occurrence: None)
  Receive Date: 20091222
  Receipt Date: 20091028
  Transmission Date: 20100525
  Serious: No
  Sender: FDA-Public Use
  Company Number: US-ASTRAZENECA-2009SE23071

PATIENT
  Age: 31741 Day
  Sex: Female

DRUGS (1)
  1. CRESTOR [Suspect]
     Dosage: CUTTING 5 MG TABLET IN HALF
     Route: 048
     Dates: start: 20091002

REACTIONS (1)
  - VISION BLURRED [None]
